FAERS Safety Report 15396807 (Version 1)
Quarter: 2018Q3

REPORT INFORMATION
  Report Type: Spontaneous
  Country: US (occurrence: US)
  Receive Date: 20180918
  Receipt Date: 20180918
  Transmission Date: 20181010
  Serious: No
  Sender: FDA-Public Use
  Company Number: US-SA-2018SA256241

PATIENT
  Age: 58 Year
  Sex: Female

DRUGS (2)
  1. PRALUENT [Suspect]
     Active Substance: ALIROCUMAB
     Dosage: UNK MG
     Route: 058
     Dates: start: 201803
  2. PRALUENT [Suspect]
     Active Substance: ALIROCUMAB
     Dosage: UNK MG
     Route: 058
     Dates: start: 201803

REACTIONS (3)
  - Injection site pain [Unknown]
  - Injection site erythema [Unknown]
  - Injection site induration [Unknown]
